FAERS Safety Report 12386707 (Version 1)
Quarter: 2016Q2

REPORT INFORMATION
  Report Type: Spontaneous
  Country: CN (occurrence: CN)
  Receive Date: 20160519
  Receipt Date: 20160519
  Transmission Date: 20160815
  Serious: Yes (Hospitalization)
  Sender: FDA-Public Use
  Company Number: CN-MYLANLABS-2016M1020625

PATIENT

DRUGS (4)
  1. PREDNISONE. [Suspect]
     Active Substance: PREDNISONE
     Indication: POEMS SYNDROME
     Dosage: 25MG/DAY, FOR 7DAYS EVERY MONTH
     Route: 065
  2. MELPHALAN [Suspect]
     Active Substance: MELPHALAN
     Indication: POEMS SYNDROME
     Dosage: 4 MG/M2/DAY
     Route: 065
  3. THALIDOMIDE [Suspect]
     Active Substance: THALIDOMIDE
     Indication: POEMS SYNDROME
     Dosage: INITIALLY RECEIVED 100 MG/DAY AND THEN REDUCED TO 75MG EVERY NIGHT
     Route: 065
  4. THALIDOMIDE [Suspect]
     Active Substance: THALIDOMIDE
     Dosage: 75MG EVERY NIGHT
     Route: 065

REACTIONS (2)
  - Neurotoxicity [Recovered/Resolved]
  - Gingivitis [Recovered/Resolved]
